FAERS Safety Report 20693503 (Version 1)
Quarter: 2022Q2

REPORT INFORMATION
  Report Type: Spontaneous
  Country: US (occurrence: None)
  Receive Date: 20220411
  Receipt Date: 20220411
  Transmission Date: 20220721
  Serious: No
  Sender: FDA-Public Use
  Company Number: 2022A122476

PATIENT
  Sex: Male
  Weight: 95.3 kg

DRUGS (5)
  1. DAPAGLIFLOZIN [Suspect]
     Active Substance: DAPAGLIFLOZIN
     Dosage: 10.0MG UNKNOWN
     Route: 048
  2. VITAMIN C [Concomitant]
     Active Substance: ASCORBIC ACID
     Dosage: UNKNOWN
     Route: 065
  3. COLLAGEN SUPPLEMENT [Concomitant]
     Dosage: UNKNOWN
     Route: 065
  4. TURMERIC SUPPLEMENT [Concomitant]
     Dosage: UNKNOWN
     Route: 065
  5. SAW PALMETTO SUPPLEMENT [Concomitant]
     Dosage: UNKNOWN
     Route: 065

REACTIONS (3)
  - Genital pain [Unknown]
  - Penis disorder [Unknown]
  - Ejaculation disorder [Unknown]
